FAERS Safety Report 8617271 (Version 3)
Quarter: 2012Q4

REPORT INFORMATION
  Report Type: 
  Country: US (occurrence: US)
  Receive Date: 20120615
  Receipt Date: 20121029
  Transmission Date: 20130627
  Serious: Yes (Disabling, Other)
  Sender: FDA-Public Use
  Company Number: US-PFIZER INC-2012051347

PATIENT
  Age: 22 Year
  Sex: Male

DRUGS (1)
  1. CHANTIX [Suspect]
     Indication: SMOKING CESSATION THERAPY
     Dosage: starter pack then continuing packs
     Route: 048

REACTIONS (5)
  - Suicide attempt [Recovered/Resolved]
  - Bipolar disorder [Not Recovered/Not Resolved]
  - Attention deficit/hyperactivity disorder [Not Recovered/Not Resolved]
  - Depression [Unknown]
  - Aggression [Unknown]
